FAERS Safety Report 17567000 (Version 2)
Quarter: 2020Q2

REPORT INFORMATION
  Report Type: Report from Study
  Country: AU (occurrence: AU)
  Receive Date: 20200320
  Receipt Date: 20200403
  Transmission Date: 20200713
  Serious: Yes (Hospitalization)
  Sender: FDA-Public Use
  Company Number: AU-AMGEN-AUSCT2020046378

PATIENT
  Age: 73 Year
  Sex: Female

DRUGS (8)
  1. MELOXICAM. [Concomitant]
     Active Substance: MELOXICAM
     Dosage: 15 MILLIGRAM
     Route: 048
     Dates: start: 20200228, end: 20200310
  2. TARGIN [Concomitant]
     Active Substance: NALOXONE HYDROCHLORIDE\OXYCODONE HYDROCHLORIDE
     Indication: BACK PAIN
     Dosage: 10/5 MG
     Route: 048
     Dates: start: 20191227
  3. DENOSUMAB [Suspect]
     Active Substance: DENOSUMAB
     Indication: MALIGNANT MELANOMA
     Dosage: 120 MILLIGRAM
     Route: 058
     Dates: start: 20180222
  4. CALTRATE PLUS [BORON;CALCIUM CARBONATE;COLECALCIFEROL;COPPER;MAGNESIUM [Concomitant]
     Active Substance: CALCIUM CARBONATE\CHOLECALCIFEROL\MINERALS
     Indication: PROPHYLAXIS
     Dosage: 600 MILLIGRAM
     Route: 048
     Dates: start: 20180222
  5. MIRTAZAPINE. [Concomitant]
     Active Substance: MIRTAZAPINE
     Indication: DEPRESSION
     Dosage: 45 MILLIGRAM
     Route: 048
     Dates: start: 2014
  6. AMLODIPINE;PERINDOPRIL [Concomitant]
     Active Substance: AMLODIPINE\PERINDOPRIL
     Indication: HYPERTENSION
     Dosage: 5/5 MG
     Route: 048
     Dates: start: 2014
  7. NIVOLUMAB [Suspect]
     Active Substance: NIVOLUMAB
     Indication: MALIGNANT MELANOMA
     Dosage: 480 MILLIGRAM
     Route: 042
     Dates: start: 20180222
  8. MOMETASONE [Concomitant]
     Active Substance: MOMETASONE
     Indication: RASH
     Dosage: (0.1%)
     Route: 061
     Dates: start: 20190418

REACTIONS (1)
  - Duodenal ulcer [Recovered/Resolved]

NARRATIVE: CASE EVENT DATE: 20200311
